FAERS Safety Report 24538601 (Version 9)
Quarter: 2025Q4

REPORT INFORMATION
  Report Type: Report from Study
  Country: EU (occurrence: EU)
  Receive Date: 20241023
  Receipt Date: 20251203
  Transmission Date: 20260117
  Serious: Yes (Hospitalization, Other)
  Sender: TAKEDA
  Company Number: EU-TAKEDA-2024TUS106076

PATIENT
  Age: 63 Year
  Sex: Male

DRUGS (19)
  1. TEDUGLUTIDE [Suspect]
     Active Substance: TEDUGLUTIDE
     Indication: Short-bowel syndrome
     Dosage: 3.8 MILLIGRAM, QD
     Dates: start: 20150511, end: 20150911
  2. TEDUGLUTIDE [Suspect]
     Active Substance: TEDUGLUTIDE
     Dosage: 2 MILLIGRAM, 4/WEEK
     Dates: start: 20150918, end: 20150924
  3. TEDUGLUTIDE [Suspect]
     Active Substance: TEDUGLUTIDE
     Dosage: 2 MILLIGRAM, QD
     Dates: start: 20151016, end: 201604
  4. TEDUGLUTIDE [Suspect]
     Active Substance: TEDUGLUTIDE
     Dosage: 2 MILLIGRAM, 3/WEEK
     Dates: start: 20150925, end: 20151001
  5. TEDUGLUTIDE [Suspect]
     Active Substance: TEDUGLUTIDE
     Dosage: 2 MILLIGRAM, 4/WEEK
     Dates: start: 20151002, end: 20151015
  6. TEDUGLUTIDE [Suspect]
     Active Substance: TEDUGLUTIDE
     Dosage: 2.5 MILLIGRAM, QD
     Dates: start: 20160419, end: 20161026
  7. TEDUGLUTIDE [Suspect]
     Active Substance: TEDUGLUTIDE
     Dosage: 2.7 MILLIGRAM, QD
     Dates: start: 20161027, end: 201907
  8. TEDUGLUTIDE [Suspect]
     Active Substance: TEDUGLUTIDE
     Dosage: 4 MILLIGRAM, QD
     Dates: start: 201907, end: 20190806
  9. TEDUGLUTIDE [Suspect]
     Active Substance: TEDUGLUTIDE
     Dosage: 3.6 MILLIGRAM, QD
     Dates: start: 20190807, end: 20191002
  10. TEDUGLUTIDE [Suspect]
     Active Substance: TEDUGLUTIDE
     Dosage: 3.8 MILLIGRAM, QD
     Dates: start: 20191003, end: 20210310
  11. TEDUGLUTIDE [Suspect]
     Active Substance: TEDUGLUTIDE
     Dosage: 3.6 MILLIGRAM, QD
     Dates: start: 20210311, end: 20211109
  12. TEDUGLUTIDE [Suspect]
     Active Substance: TEDUGLUTIDE
     Dosage: 3.8 MILLIGRAM, QD
     Dates: start: 20211110
  13. Calciumgluconat [Concomitant]
     Indication: Parenteral nutrition
     Dosage: UNK UNK, 4/WEEK
     Dates: start: 20230222
  14. PHENPROCOUMON [Concomitant]
     Active Substance: PHENPROCOUMON
     Indication: Factor V Leiden mutation
     Dosage: UNK
  15. PHENPROCOUMON [Concomitant]
     Active Substance: PHENPROCOUMON
     Indication: Antiphospholipid syndrome
  16. CALCIUM [Concomitant]
     Active Substance: CALCIUM
     Indication: Mineral supplementation
     Dosage: 1000 MILLIGRAM, QD
     Dates: start: 201704
  17. CHOLECALCIFEROL [Concomitant]
     Active Substance: CHOLECALCIFEROL
     Indication: Vitamin supplementation
     Dosage: 20 MICROGRAM, QD
     Dates: start: 201704
  18. CHOLECALCIFEROL [Concomitant]
     Active Substance: CHOLECALCIFEROL
     Indication: Vitamin supplementation
     Dosage: 1000 INTERNATIONAL UNIT, QD
     Dates: start: 201910
  19. TINZAPARIN [Concomitant]
     Active Substance: TINZAPARIN
     Indication: Antiphospholipid syndrome
     Dosage: UNK

REACTIONS (6)
  - Suicidal ideation [Recovered/Resolved]
  - Gastrointestinal haemorrhage [Recovered/Resolved]
  - Adjustment disorder [Not Recovered/Not Resolved]
  - Folate deficiency [Recovered/Resolved]
  - Weight decreased [Recovered/Resolved]
  - Anaemia [Recovered/Resolved]

NARRATIVE: CASE EVENT DATE: 20240501
